FAERS Safety Report 6618872-9 (Version None)
Quarter: 2010Q1

REPORT INFORMATION
  Report Type: 
  Country: None (occurrence: None)
  Receive Date: 20100305
  Receipt Date: 20100305
  Transmission Date: 20100710
  Serious: No
  Sender: FDA-Public Use
  Company Number: None

PATIENT
  Sex: Female
  Weight: 112.8 kg

DRUGS (21)
  1. LISINOPRIL [Suspect]
     Indication: DIABETES MELLITUS
     Dosage: 10 MG DAILY PO
     Route: 048
     Dates: start: 20100301, end: 20100302
  2. LISINOPRIL [Suspect]
     Indication: HYPERTENSION
     Dosage: 10 MG DAILY PO
     Route: 048
     Dates: start: 20100301, end: 20100302
  3. REGULAR HUMAN INSULIN [Concomitant]
  4. LORAZEPAM [Concomitant]
  5. METHYLPREDNISOLONE [Concomitant]
  6. POTASSIUM CHLORIDE [Concomitant]
  7. PENTOXIFYLLINE [Concomitant]
  8. LEVALBUTEROL HCL [Concomitant]
  9. IPRATROPIUM [Concomitant]
  10. LANTUS [Concomitant]
  11. QUAIFENESIN [Concomitant]
  12. GLYBURIDE -MICRO- [Concomitant]
  13. GABAPENTIN [Concomitant]
  14. FUROSEMIDE [Concomitant]
  15. FERROUS SULFATE LIGUID [Concomitant]
  16. FAMOTIDINE [Concomitant]
  17. DILTIAZEM HCL [Concomitant]
  18. ALLOPURINOL [Concomitant]
  19. ESOMEPRAZOLE [Concomitant]
  20. ZOSYN [Concomitant]
  21. SODIUM CHLORIDE [Concomitant]

REACTIONS (1)
  - ANGIOEDEMA [None]
